FAERS Safety Report 9945314 (Version 1)
Quarter: 2014Q1

REPORT INFORMATION
  Report Type: Spontaneous
  Country: US (occurrence: US)
  Receive Date: 20140303
  Receipt Date: 20140303
  Transmission Date: 20141002
  Serious: No
  Sender: FDA-Public Use
  Company Number: US-ABBVIE-13P-163-1052391-00

PATIENT
  Age: 60 Year
  Sex: Female
  Weight: 65.38 kg

DRUGS (11)
  1. HUMIRA [Suspect]
     Indication: RHEUMATOID ARTHRITIS
     Dates: start: 201203, end: 201302
  2. HUMIRA [Suspect]
     Dates: start: 201302
  3. METHOTREXATE [Concomitant]
     Indication: RHEUMATOID ARTHRITIS
  4. FOLIC ACID [Concomitant]
     Indication: VITAMIN SUPPLEMENTATION
  5. LISINOPRIL [Concomitant]
     Indication: HYPERTENSION
  6. PREVASTATIN [Concomitant]
     Indication: HYPERLIPIDAEMIA
  7. LIDODERM [Concomitant]
     Indication: RHEUMATOID ARTHRITIS
  8. IBUPROFEN [Concomitant]
     Indication: RHEUMATOID ARTHRITIS
  9. FLUOXETINE [Concomitant]
     Indication: FIBROMYALGIA
  10. FLEXARIL [Concomitant]
     Indication: NECK PAIN
  11. FLEXARIL [Concomitant]
     Indication: PAIN IN EXTREMITY

REACTIONS (3)
  - Drug ineffective [Not Recovered/Not Resolved]
  - Arthralgia [Not Recovered/Not Resolved]
  - Pain in extremity [Not Recovered/Not Resolved]
